FAERS Safety Report 6951305-1 (Version None)
Quarter: 2010Q3

REPORT INFORMATION
  Report Type: 
  Country: None (occurrence: None)
  Receive Date: 20100828
  Receipt Date: 20100316
  Transmission Date: 20110219
  Serious: No
  Sender: FDA-Public Use
  Company Number: US-ABBOTT-10P-163-0633981-00

PATIENT
  Sex: Male

DRUGS (1)
  1. NIASPAN [Suspect]
     Indication: PRODUCT USED FOR UNKNOWN INDICATION
     Dosage: TOOK MEDICATION FOR ABOUT 3 TO 5 DAYS

REACTIONS (6)
  - FEELING HOT [None]
  - PARAESTHESIA [None]
  - PRURITUS [None]
  - PRURITUS GENERALISED [None]
  - SOMNOLENCE [None]
  - URTICARIA [None]
